FAERS Safety Report 12050199 (Version 1)
Quarter: 2016Q1

REPORT INFORMATION
  Report Type: Spontaneous
  Country: US (occurrence: US)
  Receive Date: 20160209
  Receipt Date: 20160209
  Transmission Date: 20160526
  Serious: Yes (Other)
  Sender: FDA-Public Use
  Company Number: US-BEH-2016058416

PATIENT
  Sex: Female
  Weight: 48 kg

DRUGS (15)
  1. HEPARIN [Concomitant]
     Active Substance: HEPARIN SODIUM
  2. EPIPEN [Concomitant]
     Active Substance: EPINEPHRINE
  3. PREDNISONE. [Concomitant]
     Active Substance: PREDNISONE
  4. OXYGEN. [Concomitant]
     Active Substance: OXYGEN
  5. HCTZ [Concomitant]
     Active Substance: HYDROCHLOROTHIAZIDE
  6. LISINOPRIL. [Concomitant]
     Active Substance: LISINOPRIL
  7. ZEMAIRA [Suspect]
     Active Substance: .ALPHA.1-PROTEINASE INHIBITOR HUMAN
     Indication: ALPHA-1 ANTI-TRYPSIN DEFICIENCY
     Route: 042
  8. DIPHENHYDRAMINE. [Concomitant]
     Active Substance: DIPHENHYDRAMINE
  9. ALBUTEROL. [Concomitant]
     Active Substance: ALBUTEROL
  10. XANAX [Concomitant]
     Active Substance: ALPRAZOLAM
  11. SODIUM CHLORIDE. [Concomitant]
     Active Substance: SODIUM CHLORIDE
  12. SPIRIVA [Concomitant]
     Active Substance: TIOTROPIUM BROMIDE MONOHYDRATE
  13. PROAIR HFA [Concomitant]
     Active Substance: ALBUTEROL SULFATE
  14. AZITHROMYCIN ANHYDROUS. [Concomitant]
     Active Substance: AZITHROMYCIN ANHYDROUS
  15. LIDOCAINE/PRILOCAINE [Concomitant]

REACTIONS (1)
  - Respiratory tract infection [Unknown]
